FAERS Safety Report 14504566 (Version 1)
Quarter: 2018Q1

REPORT INFORMATION
  Report Type: Spontaneous
  Country: US (occurrence: US)
  Receive Date: 20180207
  Receipt Date: 20180207
  Transmission Date: 20180509
  Serious: Yes (Life-Threatening, Disabling, Other)
  Sender: FDA-Public Use
  Company Number: None

PATIENT
  Age: 29 Year
  Sex: Female
  Weight: 83.91 kg

DRUGS (1)
  1. TESTOPEL [Suspect]
     Active Substance: TESTOSTERONE
     Indication: BLOOD TESTOSTERONE INCREASED
     Dosage: 10 PELLETS EVERY 3 MONTHS IMPLANTED IN REAR
     Dates: start: 20161001, end: 20180207

REACTIONS (3)
  - Blood blister [None]
  - Localised infection [None]
  - Vaginal haemorrhage [None]

NARRATIVE: CASE EVENT DATE: 20171227
